FAERS Safety Report 20779856 (Version 1)
Quarter: 2022Q2

REPORT INFORMATION
  Report Type: Spontaneous
  Country: None (occurrence: GB)
  Receive Date: 20220503
  Receipt Date: 20220503
  Transmission Date: 20220720
  Serious: Yes (Life-Threatening, Hospitalization)
  Sender: FDA-Public Use
  Company Number: GB-LHC-2021000189

PATIENT
  Sex: Male

DRUGS (9)
  1. OXYGEN [Suspect]
     Active Substance: OXYGEN
     Indication: Cardiac arrest
     Route: 055
  2. ATORVASTATIN [Concomitant]
     Active Substance: ATORVASTATIN
  3. CALCEOS (CHOLECALCIFEROL CONCENTRATE (POWDER FORM), CALCIUM CARBONATE) [Concomitant]
  4. CLOPIDOGREL [Concomitant]
     Active Substance: CLOPIDOGREL BISULFATE
  5. FOLIC ACID [Concomitant]
     Active Substance: FOLIC ACID
  6. OMEPRAZOLE [Concomitant]
     Active Substance: OMEPRAZOLE
  7. TINZAPARIN [Concomitant]
     Active Substance: TINZAPARIN
  8. CODEINE PHOSPHATE [Concomitant]
     Active Substance: CODEINE PHOSPHATE
  9. ACETAMINOPHEN [Concomitant]
     Active Substance: ACETAMINOPHEN

REACTIONS (1)
  - Cardiac arrest [Unknown]
